FAERS Safety Report 7156130-7 (Version None)
Quarter: 2010Q4

REPORT INFORMATION
  Report Type: 
  Country: None (occurrence: None)
  Receive Date: 20101214
  Receipt Date: 20101130
  Transmission Date: 20110411
  Serious: Yes (Hospitalization)
  Sender: FDA-Public Use
  Company Number: DE-CELGENEUS-062-50794-10111966

PATIENT
  Age: 66 Year
  Sex: Male
  Weight: 97 kg

DRUGS (12)
  1. VIDAZA [Suspect]
     Route: 058
     Dates: start: 20100101, end: 20100901
  2. VIDAZA [Suspect]
     Route: 058
     Dates: start: 20101102, end: 20101111
  3. DICLOFENAC [Suspect]
     Indication: BACK PAIN
     Dosage: HIGH DOSE
     Route: 065
  4. OMEPRAZOLE [Suspect]
     Route: 065
  5. IBUPROFEN [Suspect]
     Indication: ANTIINFLAMMATORY THERAPY
     Route: 065
  6. ACETYLSALICYLIC ACID [Concomitant]
     Route: 065
  7. BISOPROLOL [Concomitant]
     Route: 065
  8. SIMVASTATIN [Concomitant]
     Route: 065
  9. AMLODIPINE [Concomitant]
     Route: 065
  10. VIANI [Concomitant]
     Route: 065
  11. TAMSULOSIN [Concomitant]
     Route: 065
  12. TAVANIC [Concomitant]
     Route: 065
     Dates: start: 20101107, end: 20101112

REACTIONS (1)
  - HAEMATOCHEZIA [None]
